FAERS Safety Report 6319443-4 (Version None)
Quarter: 2009Q3

REPORT INFORMATION
  Report Type: 
  Country: None (occurrence: None)
  Receive Date: 20090822
  Receipt Date: 20080903
  Transmission Date: 20100115
  Serious: No
  Sender: FDA-Public Use
  Company Number: US-ABBOTT-08P-163-0474625-00

PATIENT
  Sex: Male

DRUGS (15)
  1. NIASPAN [Suspect]
     Indication: BLOOD CHOLESTEROL ABNORMAL
     Route: 048
     Dates: end: 20080822
  2. NIASPAN [Suspect]
     Route: 048
     Dates: start: 20080822
  3. ASPIRIN [Concomitant]
     Indication: CARDIAC DISORDER
     Route: 048
     Dates: start: 20070101
  4. METOPROLOL [Concomitant]
     Indication: HYPERTENSION
     Route: 048
     Dates: start: 20070206
  5. METOPROLOL [Concomitant]
     Indication: ANGINA PECTORIS
  6. METOPROLOL [Concomitant]
     Indication: CARDIAC FAILURE CONGESTIVE
  7. INEGY [Concomitant]
     Indication: BLOOD CHOLESTEROL
     Dosage: 10/80
     Route: 048
     Dates: start: 20071101
  8. AMLODIPINE [Concomitant]
     Indication: HYPERTENSION
     Route: 048
     Dates: start: 20070101
  9. CLOPIDOGREL [Concomitant]
     Indication: THROMBOSIS PROPHYLAXIS
     Route: 048
     Dates: start: 20070101
  10. SPIRONACT [Concomitant]
     Indication: DIURETIC THERAPY
     Route: 048
     Dates: start: 20070502
  11. ISOSORBINE [Concomitant]
     Indication: ANGINA PECTORIS
     Route: 048
     Dates: start: 20080709
  12. MORNIFLUMATE [Concomitant]
     Indication: BENIGN PROSTATIC HYPERPLASIA
     Route: 048
     Dates: start: 20070101
  13. FOLIC ACID [Concomitant]
     Indication: SUPPLEMENTATION THERAPY
     Route: 048
  14. GLYCERYL TRINITRATE [Concomitant]
     Indication: ANGINA PECTORIS
     Route: 060
  15. DOCUSATE CALCIUM [Concomitant]
     Indication: DRUG USE FOR UNKNOWN INDICATION
     Route: 048

REACTIONS (1)
  - VASCULITIS [None]
